FAERS Safety Report 8365024-0 (Version None)
Quarter: 2012Q2

REPORT INFORMATION
  Report Type: 
  Country: None (occurrence: None)
  Receive Date: 20120516
  Receipt Date: 20120510
  Transmission Date: 20120825
  Serious: Yes (Hospitalization)
  Sender: FDA-Public Use
  Company Number: US-GLAXOSMITHKLINE-B0769041A

PATIENT
  Age: 53 Year
  Sex: Male
  Weight: 113.6 kg

DRUGS (9)
  1. GLUCOPHAGE [Concomitant]
  2. NORVASC [Concomitant]
  3. PRILOSEC [Concomitant]
  4. AVANDIA [Suspect]
     Indication: DIABETES MELLITUS
     Dosage: 4MG TWICE PER DAY
     Route: 048
     Dates: start: 20010701, end: 20110311
  5. LIPITOR [Concomitant]
  6. MONOPRIL [Concomitant]
  7. VIOXX [Concomitant]
  8. LIPITOR [Concomitant]
  9. GLUCOTROL [Concomitant]

REACTIONS (3)
  - CORONARY ARTERY DISEASE [None]
  - CEREBROVASCULAR ACCIDENT [None]
  - CARDIAC FAILURE CONGESTIVE [None]
